FAERS Safety Report 10809327 (Version 1)
Quarter: 2015Q1

REPORT INFORMATION
  Report Type: Spontaneous
  Country: US (occurrence: None)
  Receive Date: 20150212
  Receipt Date: 20150212
  Transmission Date: 20150721
  Serious: Yes (Hospitalization)
  Sender: FDA-Public Use
  Company Number: None

PATIENT
  Age: 68 Year
  Sex: Male
  Weight: 92.6 kg

DRUGS (2)
  1. RITUXIMAB [Concomitant]
     Active Substance: RITUXIMAB
     Indication: B-CELL LYMPHOMA
     Route: 042
     Dates: start: 20141003, end: 20141003
  2. DOXORUBICIN [Suspect]
     Active Substance: DOXORUBICIN
     Indication: B-CELL LYMPHOMA
     Route: 042
     Dates: start: 20141009, end: 20141009

REACTIONS (9)
  - Staphylococcus test positive [None]
  - Blood potassium decreased [None]
  - Proteinuria [None]
  - Febrile neutropenia [None]
  - Faecal incontinence [None]
  - Confusional state [None]
  - Leukopenia [None]
  - Neutropenia [None]
  - Blood creatinine increased [None]

NARRATIVE: CASE EVENT DATE: 20141018
